FAERS Safety Report 12407178 (Version 1)
Quarter: 2016Q2

REPORT INFORMATION
  Report Type: Spontaneous
  Country: DK (occurrence: DK)
  Receive Date: 20160526
  Receipt Date: 20160526
  Transmission Date: 20160815
  Serious: Yes (Hospitalization, Disabling)
  Sender: FDA-Public Use
  Company Number: PHHY2016DK070791

PATIENT
  Age: 40 Year
  Sex: Female
  Weight: 97.3 kg

DRUGS (1)
  1. GESTONETTE [Suspect]
     Active Substance: ETHINYL ESTRADIOL\GESTODENE
     Indication: CONTRACEPTION
     Route: 048

REACTIONS (9)
  - Limb discomfort [Unknown]
  - Splenic thrombosis [Unknown]
  - Short-bowel syndrome [Unknown]
  - Intestinal ischaemia [Unknown]
  - Impaired work ability [Unknown]
  - Aortic thrombosis [Unknown]
  - Thrombosis [Unknown]
  - Abdominal pain [Unknown]
  - Vomiting [Unknown]

NARRATIVE: CASE EVENT DATE: 20121121
